FAERS Safety Report 5479745-0 (Version None)
Quarter: 2007Q4

REPORT INFORMATION
  Report Type: 
  Country: None (occurrence: None)
  Receive Date: 20071008
  Receipt Date: 20070927
  Transmission Date: 20080405
  Serious: Yes (Other)
  Sender: FDA-Public Use
  Company Number: US-JNJFOC-20071000200

PATIENT
  Age: 57 Year
  Sex: Female
  Weight: 68.04 kg

DRUGS (3)
  1. TOPAMAX [Suspect]
     Indication: MIGRAINE PROPHYLAXIS
     Route: 048
  2. SYNTHROID [Concomitant]
     Indication: HYPERTHYROIDISM
     Route: 048
  3. UNKNOWN MEDICATION [Concomitant]
     Indication: DEPRESSION
     Route: 048

REACTIONS (14)
  - AGGRESSION [None]
  - ANOREXIA [None]
  - BLOOD URINE PRESENT [None]
  - DEPRESSION [None]
  - DYSGEUSIA [None]
  - MENTAL STATUS CHANGES [None]
  - MOOD ALTERED [None]
  - MUSCULOSKELETAL PAIN [None]
  - NEPHROLITHIASIS [None]
  - PARTNER STRESS [None]
  - PERIARTHRITIS [None]
  - PERSONALITY CHANGE [None]
  - TREMOR [None]
  - WEIGHT DECREASED [None]
